FAERS Safety Report 5975543-X (Version None)
Quarter: 2008Q4

REPORT INFORMATION
  Report Type: 
  Country: None (occurrence: None)
  Receive Date: 20081202
  Receipt Date: 20080711
  Transmission Date: 20090506
  Serious: No
  Sender: FDA-Public Use
  Company Number: A0737216A

PATIENT
  Age: 9 Year
  Sex: Female

DRUGS (3)
  1. AUGMENTIN ES-600 [Suspect]
     Dosage: 1TSP TWICE PER DAY
     Route: 048
     Dates: start: 20080702, end: 20080709
  2. ZYRTEC [Concomitant]
  3. TYLENOL (CAPLET) [Concomitant]

REACTIONS (5)
  - CRYING [None]
  - DEPRESSION [None]
  - DYSGEUSIA [None]
  - MOOD ALTERED [None]
  - PRODUCT QUALITY ISSUE [None]
